FAERS Safety Report 25462732 (Version 2)
Quarter: 2025Q3

REPORT INFORMATION
  Report Type: Spontaneous
  Country: US (occurrence: US)
  Receive Date: 20250620
  Receipt Date: 20250715
  Transmission Date: 20251021
  Serious: Yes (Other)
  Sender: PFIZER
  Company Number: US-PFIZER INC-202500124582

PATIENT
  Age: 87 Year
  Sex: Male

DRUGS (1)
  1. ELREXFIO [Suspect]
     Active Substance: ELRANATAMAB-BCMM
     Dates: start: 20250327

REACTIONS (6)
  - Anaemia [Unknown]
  - Fall [Unknown]
  - Balance disorder [Unknown]
  - Injection site rash [Unknown]
  - Asthenia [Unknown]
  - Off label use [Unknown]
